FAERS Safety Report 8159463-0 (Version None)
Quarter: 2012Q1

REPORT INFORMATION
  Report Type: 
  Country: None (occurrence: None)
  Receive Date: 20120223
  Receipt Date: 20120216
  Transmission Date: 20120608
  Serious: Yes (Hospitalization)
  Sender: FDA-Public Use
  Company Number: US-BAYER-2010-006787

PATIENT
  Age: 17 Year
  Sex: Female
  Weight: 70 kg

DRUGS (3)
  1. YAZ [Suspect]
     Indication: DYSMENORRHOEA
  2. WARFARIN SODIUM [Concomitant]
     Dosage: UNK
     Dates: start: 20100801
  3. YAZ [Suspect]
     Indication: MENORRHAGIA
     Dosage: UNK
     Route: 048
     Dates: start: 20100125, end: 20100224

REACTIONS (5)
  - PAIN [None]
  - OEDEMA PERIPHERAL [None]
  - DYSPNOEA [None]
  - CHEST PAIN [None]
  - DEEP VEIN THROMBOSIS [None]
